FAERS Safety Report 22915711 (Version 7)
Quarter: 2025Q4

REPORT INFORMATION
  Report Type: Report from Study
  Country: CA (occurrence: CA)
  Receive Date: 20230907
  Receipt Date: 20251208
  Transmission Date: 20260118
  Serious: Yes (Other)
  Sender: BIOCON
  Company Number: CA-MYLANLABS-2023M1069961

PATIENT

DRUGS (4)
  1. HULIO [Suspect]
     Active Substance: ADALIMUMAB-FKJP
     Indication: Crohn^s disease
     Dosage: UNK
     Route: 058
  2. HULIO [Suspect]
     Active Substance: ADALIMUMAB-FKJP
     Dosage: 40 MG, Q2W (EVERY TWO WEEK)
     Route: 058
     Dates: start: 20210924
  3. HULIO [Suspect]
     Active Substance: ADALIMUMAB-FKJP
     Dosage: 40 MG, QW
     Route: 058
     Dates: start: 20210908
  4. HULIO [Suspect]
     Active Substance: ADALIMUMAB-FKJP
     Dosage: 40 MG, QW
     Route: 058
     Dates: start: 20210924

REACTIONS (22)
  - Dermatitis [Unknown]
  - Crohn^s disease [Not Recovered/Not Resolved]
  - Uveitis [Recovered/Resolved]
  - Blood pressure inadequately controlled [Unknown]
  - Thyroid disorder [Unknown]
  - Abdominal tenderness [Unknown]
  - Anal fissure [Unknown]
  - Loss of personal independence in daily activities [Unknown]
  - Impaired quality of life [Unknown]
  - Malaise [Unknown]
  - Joint stiffness [Unknown]
  - Eye inflammation [Recovered/Resolved]
  - Iritis [Unknown]
  - Arthralgia [Not Recovered/Not Resolved]
  - Diarrhoea [Unknown]
  - Fatigue [Unknown]
  - Inflammation [Unknown]
  - Iron deficiency anaemia [Unknown]
  - Abdominal pain [Unknown]
  - Herpes zoster [Unknown]
  - Paraesthesia [Unknown]
  - Off label use [Unknown]
